FAERS Safety Report 7016041-4 (Version None)
Quarter: 2010Q3

REPORT INFORMATION
  Report Type: 
  Country: None (occurrence: None)
  Receive Date: 20100927
  Receipt Date: 20100916
  Transmission Date: 20110219
  Serious: Yes (Hospitalization)
  Sender: FDA-Public Use
  Company Number: EC-JNJFOC-20100906119

PATIENT
  Age: 51 Year
  Sex: Female

DRUGS (2)
  1. REMICADE [Suspect]
     Indication: DERMATOMYOSITIS
     Route: 042
  2. REMICADE [Suspect]
     Dosage: 2 INFUSIONS ON UNSPECIFED DATES
     Route: 042

REACTIONS (1)
  - MENINGITIS [None]
